FAERS Safety Report 8926655 (Version 1)
Quarter: 2012Q4

REPORT INFORMATION
  Report Type: Report from Study
  Country: JP (occurrence: JP)
  Receive Date: 20121127
  Receipt Date: 20121127
  Transmission Date: 20130627
  Serious: Yes (Other)
  Sender: FDA-Public Use
  Company Number: JP-VERTEX PHARMACEUTICAL INC.-AE-2012-007735

PATIENT
  Age: 49 Year
  Sex: Male

DRUGS (9)
  1. VX-950 (TELAPREVIR) [Suspect]
     Indication: CHRONIC HEPATITIS C
     Dosage: 2250 mg, qd
     Route: 048
     Dates: start: 20120214, end: 20120507
  2. PEGINTRON                          /01543001/ [Suspect]
     Indication: CHRONIC HEPATITIS C
     Dosage: 1.5 ?g/kg, qw
     Route: 058
     Dates: start: 20120214
  3. PEGINTRON                          /01543001/ [Suspect]
     Dosage: 100 ?g, qw
     Route: 058
     Dates: end: 20120731
  4. REBETOL [Suspect]
     Indication: CHRONIC HEPATITIS C
     Dosage: 800 mg, qd
     Route: 048
     Dates: start: 20120214, end: 20120305
  5. REBETOL [Suspect]
     Dosage: 600 mg, qd
     Route: 048
     Dates: start: 20120306, end: 20120731
  6. ZYLORIC [Suspect]
     Indication: ADVERSE EVENT
     Dosage: 200 mg, qd
     Route: 048
     Dates: start: 20120222, end: 20120306
  7. ZYLORIC [Suspect]
     Dosage: UNK
     Route: 048
     Dates: start: 20120321, end: 20120328
  8. FEBURIC [Suspect]
     Indication: ADVERSE EVENT
     Dosage: 10 mg, qd
     Route: 048
     Dates: start: 20120424, end: 20120501
  9. URSO                               /00465701/ [Concomitant]
     Dosage: 600 mg, qd
     Route: 048
     Dates: end: 20120227

REACTIONS (2)
  - Rhabdomyolysis [Recovered/Resolved]
  - Rhabdomyolysis [Recovered/Resolved]
